FAERS Safety Report 9360854 (Version 2)
Quarter: 2013Q3

REPORT INFORMATION
  Report Type: Spontaneous
  Country: US (occurrence: US)
  Receive Date: 20130621
  Receipt Date: 20130723
  Transmission Date: 20140515
  Serious: No
  Sender: FDA-Public Use
  Company Number: US-TEVA-413848USA

PATIENT
  Age: 52 Year
  Sex: Female

DRUGS (1)
  1. PROAIR HFA [Suspect]
     Route: 055

REACTIONS (4)
  - Pain [Recovered/Resolved]
  - Increased upper airway secretion [Recovered/Resolved]
  - Dysphonia [Recovered/Resolved]
  - Product contamination [Unknown]
